FAERS Safety Report 7672391-X (Version None)
Quarter: 2011Q3

REPORT INFORMATION
  Report Type: 
  Country: None (occurrence: None)
  Receive Date: 20110809
  Receipt Date: 20110725
  Transmission Date: 20111222
  Serious: Yes (Hospitalization)
  Sender: FDA-Public Use
  Company Number: TR-WATSON-2011-12029

PATIENT
  Age: 8 Year
  Sex: Male

DRUGS (2)
  1. TOPIRAMATE [Suspect]
     Indication: CONVULSION
     Dosage: 2 X 10 TABLETS OF 25 MG
     Route: 065
  2. TOPIRAMATE [Suspect]
     Dosage: 2 X 10 TABS OF 50 MG FOR 3 DAYS
     Route: 065

REACTIONS (7)
  - TOXICITY TO VARIOUS AGENTS [None]
  - HYPERREFLEXIA [None]
  - ATAXIA [None]
  - VOMITING [None]
  - MENINGISM [None]
  - LETHARGY [None]
  - NAUSEA [None]
